FAERS Safety Report 24703313 (Version 3)
Quarter: 2025Q1

REPORT INFORMATION
  Report Type: Report from Study
  Country: DE (occurrence: DE)
  Receive Date: 20241205
  Receipt Date: 20250214
  Transmission Date: 20250409
  Serious: Yes (Hospitalization)
  Sender: ABBVIE
  Company Number: DE-ABBVIE-6027965

PATIENT
  Age: 85 Year
  Sex: Male

DRUGS (5)
  1. FOSCARBIDOPA\FOSLEVODOPA [Suspect]
     Active Substance: FOSCARBIDOPA\FOSLEVODOPA
     Indication: Parkinson^s disease
     Route: 058
     Dates: start: 20240730, end: 20250121
  2. FOSCARBIDOPA\FOSLEVODOPA [Suspect]
     Active Substance: FOSCARBIDOPA\FOSLEVODOPA
     Route: 058
     Dates: start: 202406, end: 202407
  3. LEVODOPA [Concomitant]
     Active Substance: LEVODOPA
     Indication: Parkinson^s disease
     Route: 065
  4. XADAGO [Concomitant]
     Active Substance: SAFINAMIDE MESYLATE
     Indication: Parkinson^s disease
     Route: 065
  5. TOLTERODINE [Concomitant]
     Active Substance: TOLTERODINE
     Indication: Product used for unknown indication
     Route: 065

REACTIONS (15)
  - Carpal tunnel syndrome [Recovering/Resolving]
  - Infusion site abscess [Unknown]
  - Hospitalisation [Not Recovered/Not Resolved]
  - Infusion site abscess [Recovered/Resolved]
  - Fall [Not Recovered/Not Resolved]
  - Speech disorder [Unknown]
  - Salivary hypersecretion [Unknown]
  - Hypoaesthesia [Unknown]
  - Urinary tract infection [Recovering/Resolving]
  - Memory impairment [Unknown]
  - Bradyphrenia [Unknown]
  - Disturbance in attention [Unknown]
  - Gait disturbance [Unknown]
  - Dysarthria [Unknown]
  - Nerve conduction studies abnormal [Recovering/Resolving]

NARRATIVE: CASE EVENT DATE: 20240101
